FAERS Safety Report 23612167 (Version 1)
Quarter: 2024Q1

REPORT INFORMATION
  Report Type: Spontaneous
  Country: US (occurrence: None)
  Receive Date: 20240308
  Receipt Date: 20240308
  Transmission Date: 20240409
  Serious: Yes (Other)
  Sender: FDA-Public Use
  Company Number: None

PATIENT
  Age: 62 Year
  Sex: Female
  Weight: 108 kg

DRUGS (1)
  1. ATORVASTATIN [Suspect]
     Active Substance: ATORVASTATIN
     Indication: Low density lipoprotein increased
     Dates: start: 20240213, end: 20240223

REACTIONS (5)
  - Muscular weakness [None]
  - Arthralgia [None]
  - Rash [None]
  - Scar [None]
  - Arthralgia [None]

NARRATIVE: CASE EVENT DATE: 20240220
